FAERS Safety Report 4751584-5 (Version None)
Quarter: 2005Q3

REPORT INFORMATION
  Report Type: 
  Country: None (occurrence: None)
  Receive Date: 20050824
  Receipt Date: 20050818
  Transmission Date: 20060218
  Serious: Yes (Other)
  Sender: FDA-Public Use
  Company Number: GB-GLAXOSMITHKLINE-B0391216A

PATIENT
  Age: 24 Year
  Sex: Male
  Weight: 95 kg

DRUGS (2)
  1. ZYBAN [Suspect]
     Dosage: 150MG TWICE PER DAY
     Route: 048
     Dates: start: 20050614, end: 20050708
  2. ALCOHOL [Suspect]

REACTIONS (5)
  - ALCOHOL INTERACTION [None]
  - AMNESIA [None]
  - MALAISE [None]
  - NAUSEA [None]
  - RESTLESSNESS [None]
